FAERS Safety Report 7122734-0 (Version None)
Quarter: 2010Q4

REPORT INFORMATION
  Report Type: 
  Country: None (occurrence: None)
  Receive Date: 20101124
  Receipt Date: 20101116
  Transmission Date: 20110411
  Serious: No
  Sender: FDA-Public Use
  Company Number: US-PFIZER INC-2010152135

PATIENT
  Sex: Male
  Weight: 83.914 kg

DRUGS (4)
  1. PRISTIQ [Suspect]
     Indication: DEPRESSION
     Dosage: 50 MG, 1X/DAY
     Dates: start: 20101001
  2. PRISTIQ [Suspect]
     Indication: BIPOLAR DISORDER
  3. ABILIFY [Suspect]
     Indication: DEPRESSION
     Dosage: 2 MG, 1X/DAY EVERY MORNING
     Dates: start: 20101001, end: 20101001
  4. ABILIFY [Suspect]
     Indication: BIPOLAR DISORDER

REACTIONS (8)
  - BODY TEMPERATURE FLUCTUATION [None]
  - DYSPNOEA [None]
  - ENERGY INCREASED [None]
  - HOT FLUSH [None]
  - HYPERHIDROSIS [None]
  - NERVOUSNESS [None]
  - NIPPLE DISORDER [None]
  - NIPPLE PAIN [None]
